FAERS Safety Report 24126347 (Version 1)
Quarter: 2024Q3

REPORT INFORMATION
  Report Type: Report from Study
  Country: IN (occurrence: US)
  Receive Date: 20240723
  Receipt Date: 20240723
  Transmission Date: 20241016
  Serious: Yes (Other)
  Sender: AMGEN
  Company Number: IN-AMGEN-USASL2024141388

PATIENT
  Age: 36 Year
  Sex: Female

DRUGS (1)
  1. REPATHA [Suspect]
     Active Substance: EVOLOCUMAB
     Indication: Product used for unknown indication
     Dosage: STRENGTH: 240 MG
     Route: 058

REACTIONS (1)
  - Stomatitis [Unknown]

NARRATIVE: CASE EVENT DATE: 20240101
